FAERS Safety Report 8180317 (Version 6)
Quarter: 2012Q4

REPORT INFORMATION
  Report Type: 
  Country: US (occurrence: US)
  Receive Date: 20111013
  Receipt Date: 20121029
  Transmission Date: 20130627
  Serious: Yes (Hospitalization, Disabling, Other)
  Sender: FDA-Public Use
  Company Number: US-009507513-1110USA01314

PATIENT

DRUGS (10)
  1. FOSAMAX [Suspect]
     Indication: OSTEOPENIA
     Dosage: 10 mg, UNK
     Route: 048
     Dates: start: 199807, end: 200201
  2. FOSAMAX [Suspect]
     Indication: OSTEOPOROSIS
     Dosage: 5 mg, UNK
     Route: 048
     Dates: start: 200202, end: 200303
  3. FOSAMAX [Suspect]
     Dosage: 70 mg, QW
     Route: 048
     Dates: start: 200304, end: 200705
  4. FOSAMAX [Suspect]
     Indication: OSTEOPENIA
     Dosage: UNK
     Route: 048
  5. CLARITIN [Concomitant]
     Indication: HYPERSENSITIVITY
     Route: 048
     Dates: start: 1998, end: 2002
  6. ALLEGRA [Concomitant]
     Indication: HYPERSENSITIVITY
     Route: 048
     Dates: start: 2003, end: 2004
  7. ATIVAN [Concomitant]
     Indication: ANXIETY
  8. ZESTRIL [Concomitant]
     Indication: HYPERTENSION
     Route: 048
  9. METOPROLOL [Concomitant]
     Indication: HYPERTENSION
  10. NAPROSYN [Concomitant]
     Indication: ARTHRITIS

REACTIONS (98)
  - Closed fracture manipulation [Unknown]
  - Low turnover osteopathy [Not Recovered/Not Resolved]
  - Post-traumatic stress disorder [Not Recovered/Not Resolved]
  - Wrist fracture [Unknown]
  - Pancreatitis acute [Unknown]
  - Coronary artery disease [Unknown]
  - Transient ischaemic attack [Unknown]
  - Femur fracture [Unknown]
  - Angina unstable [Unknown]
  - Sinus bradycardia [Unknown]
  - Mitral valve prolapse [Unknown]
  - Arteriosclerosis coronary artery [Unknown]
  - Cerebrovascular accident [Unknown]
  - Alcohol abuse [Unknown]
  - Mitral valve incompetence [Unknown]
  - Pancreatitis acute [Unknown]
  - Myocardial infarction [Unknown]
  - Pancreatitis acute [Recovered/Resolved]
  - Presyncope [Unknown]
  - Tonsillar disorder [Unknown]
  - Aortic valve incompetence [Unknown]
  - Cholecystitis [Unknown]
  - Hypotension [Unknown]
  - Pneumothorax [Unknown]
  - Non-cardiac chest pain [Unknown]
  - Chest pain [Unknown]
  - Arthropathy [Unknown]
  - Chest pain [Unknown]
  - Coronary artery disease [Unknown]
  - Sinus bradycardia [Unknown]
  - Femur fracture [Not Recovered/Not Resolved]
  - Dizziness [Unknown]
  - Pain [Not Recovered/Not Resolved]
  - Depression [Unknown]
  - Adverse event [Unknown]
  - Cardiac murmur [Unknown]
  - Dyspnoea [Unknown]
  - Rhinitis allergic [Unknown]
  - Cardiac failure congestive [Unknown]
  - Chronic obstructive pulmonary disease [Not Recovered/Not Resolved]
  - Alcohol poisoning [Unknown]
  - Hypercholesterolaemia [Unknown]
  - Cardiac contusion [Unknown]
  - Radius fracture [Unknown]
  - Carpal tunnel syndrome [Unknown]
  - Syncope [Unknown]
  - Major depression [Unknown]
  - Gait disturbance [Not Recovered/Not Resolved]
  - Rotator cuff syndrome [Unknown]
  - Arthropathy [Unknown]
  - Physical assault [Unknown]
  - Rheumatoid arthritis [Unknown]
  - Vitamin K deficiency [Unknown]
  - Haematoma [Unknown]
  - Contusion [Unknown]
  - Contusion [Unknown]
  - Contusion [Unknown]
  - Muscular weakness [Not Recovered/Not Resolved]
  - Skin mass [Recovered/Resolved]
  - Breath sounds abnormal [Unknown]
  - Cerebral atrophy [Unknown]
  - Alcohol poisoning [Unknown]
  - Chest discomfort [Unknown]
  - Head injury [Unknown]
  - Alcohol use [Unknown]
  - Fatigue [Unknown]
  - Feeling abnormal [Unknown]
  - Vision blurred [Unknown]
  - Electrocardiogram ST-T change [Unknown]
  - Hypoaesthesia [Unknown]
  - Intervertebral disc protrusion [Unknown]
  - Intervertebral disc protrusion [Unknown]
  - Adverse event [Unknown]
  - Chest injury [Unknown]
  - Fall [Unknown]
  - Flank pain [Unknown]
  - Sleep disorder [Unknown]
  - Pain [Unknown]
  - Joint lock [Unknown]
  - Dyspnoea exertional [Unknown]
  - Fatigue [Unknown]
  - Rotator cuff syndrome [Unknown]
  - Intervertebral disc degeneration [Unknown]
  - Osteoarthritis [Unknown]
  - Pyrexia [Unknown]
  - Gastrooesophageal reflux disease [Unknown]
  - Pain in extremity [Unknown]
  - Back pain [Unknown]
  - Back pain [Unknown]
  - Gastric ulcer [Unknown]
  - Dizziness [Unknown]
  - Nausea [Unknown]
  - Neck pain [Not Recovered/Not Resolved]
  - Headache [Unknown]
  - Arthralgia [Unknown]
  - Arthralgia [Not Recovered/Not Resolved]
  - Gastritis [Not Recovered/Not Resolved]
  - Drug ineffective [Unknown]
